FAERS Safety Report 10767256 (Version 1)
Quarter: 2015Q1

REPORT INFORMATION
  Report Type: Spontaneous
  Country: US (occurrence: US)
  Receive Date: 20150205
  Receipt Date: 20150205
  Transmission Date: 20150721
  Serious: No
  Sender: FDA-Public Use
  Company Number: US-GALDERMA-US14002865

PATIENT
  Age: 17 Year
  Sex: Female

DRUGS (5)
  1. PHYSICIANS FORMULA MINERAL FOUNDATION POWDER WITH SUNSCREEN [Concomitant]
     Indication: THERAPEUTIC SKIN CARE TOPICAL
     Route: 061
     Dates: start: 201405
  2. CETAPHIL [Concomitant]
     Active Substance: AVOBENZONE\OCTOCRYLENE\TRICLOSAN
     Indication: THERAPEUTIC SKIN CARE TOPICAL
     Route: 061
     Dates: start: 20140718
  3. MINOCYCLINE [Concomitant]
     Active Substance: MINOCYCLINE\MINOCYCLINE HYDROCHLORIDE
     Indication: ACNE
     Dosage: 200 MG
     Route: 048
     Dates: start: 20140718
  4. CERVE SUNSCREEN SPF 30 [Concomitant]
     Indication: PROPHYLAXIS AGAINST SOLAR RADIATION
     Route: 061
     Dates: start: 20140718
  5. EPIDUO [Suspect]
     Active Substance: ADAPALENE\BENZOYL PEROXIDE
     Indication: ACNE
     Route: 061
     Dates: start: 20140718, end: 20140720

REACTIONS (8)
  - Erythema [Recovered/Resolved]
  - Swelling face [Recovered/Resolved]
  - Chemical injury [Recovered/Resolved]
  - Skin exfoliation [Recovered/Resolved]
  - Dermatitis allergic [Recovered/Resolved]
  - Scar [Not Recovered/Not Resolved]
  - Skin warm [Recovered/Resolved]
  - Scab [Recovered/Resolved]

NARRATIVE: CASE EVENT DATE: 20140718
